FAERS Safety Report 5677540-0 (Version None)
Quarter: 2008Q1

REPORT INFORMATION
  Report Type: 
  Country: None (occurrence: None)
  Receive Date: 20080324
  Receipt Date: 20080313
  Transmission Date: 20080703
  Serious: Yes (Hospitalization)
  Sender: FDA-Public Use
  Company Number: US-ELI_LILLY_AND_COMPANY-US200801004157

PATIENT
  Sex: Female
  Weight: 53.968 kg

DRUGS (15)
  1. FORTEO [Suspect]
     Indication: OSTEOPOROSIS
     Dosage: 20 UG, DAILY (1/D)
     Route: 058
     Dates: start: 20080114, end: 20080101
  2. ACTONEL [Concomitant]
     Dosage: 35 UG, WEEKLY (1/W)
  3. AMILORIDE HYDROCHLORIDE [Concomitant]
     Dosage: 5 MG, UNK
  4. ASCORBIC ACID [Concomitant]
     Dosage: 500 MG, UNK
  5. ASPIRIN [Concomitant]
     Dosage: 81 MG, DAILY (1/D)
  6. VITAMIN B-12 [Concomitant]
     Dosage: 500 UG, DAILY (1/D)
     Route: 048
  7. SYNTHROID [Concomitant]
     Dosage: 50 UG, DAILY (1/D)
  8. MEVACOR [Concomitant]
     Dosage: 20 MG, DAILY (1/D)
  9. LOPRESSOR [Concomitant]
     Dosage: 25 MG, DAILY (1/D)
  10. NITROGLYCERIN [Concomitant]
     Dosage: UNK, AS NEEDED
  11. CALCIUM [Concomitant]
     Dosage: UNK, 2/D
  12. PILOCARPINE [Concomitant]
     Dosage: UNK, DAILY (1/D)
  13. TYLENOL (CAPLET) [Concomitant]
     Dosage: UNK, AS NEEDED
  14. AMBIEN [Concomitant]
     Dosage: UNK, AS NEEDED
  15. IMDUR [Concomitant]
     Dosage: 10 MG, DAILY (1/D)

REACTIONS (8)
  - CHEST PAIN [None]
  - GASTROOESOPHAGEAL REFLUX DISEASE [None]
  - GLAUCOMA [None]
  - HYPERCHOLESTEROLAEMIA [None]
  - HYPERTENSION [None]
  - HYPOTHYROIDISM [None]
  - PALPITATIONS [None]
  - TREMOR [None]
